FAERS Safety Report 6136473-6 (Version None)
Quarter: 2009Q1

REPORT INFORMATION
  Report Type: 
  Country: None (occurrence: None)
  Receive Date: 20090325
  Receipt Date: 20090321
  Transmission Date: 20090719
  Serious: No
  Sender: FDA-Public Use
  Company Number: AE-2008-061

PATIENT
  Age: 33 Year
  Sex: Female

DRUGS (13)
  1. ASPIRIN [Suspect]
     Indication: ANTIPHOSPHOLIPID SYNDROME
  2. ALFENTANIL [Suspect]
     Dosage: 1MG;
  3. AZATHIOPRINE [Suspect]
     Indication: IDIOPATHIC THROMBOCYTOPENIC PURPURA
  4. DALTEPARIN SODIUM [Suspect]
     Indication: ANTIPHOSPHOLIPID SYNDROME
  5. IMMUNE GLOBULIN INTRAVENOUS (HUMAN) [Suspect]
     Dosage: INTRAVENOUSLY
     Route: 042
  6. ISOFLURANE [Suspect]
  7. METOCLOPRAMIDE [Suspect]
     Dosage: 10 MG, INTRAVENOUS
     Route: 042
  8. PROTAMINE SULFATE [Suspect]
     Dosage: 50 MG;
  9. RANITIDINE [Suspect]
     Dosage: 50MG;
  10. SODIUM CITRATE [Suspect]
     Dosage: 30ML, 3M; ORAL
     Route: 048
  11. SUCCINYLCHOLINE CHLORIDE [Suspect]
     Dosage: 150MG;
  12. THIOPENTAL SODIUM [Suspect]
     Dosage: 500MG;
  13. NITROUS OXIDE [Suspect]

REACTIONS (12)
  - ACTIVATED PARTIAL THROMBOPLASTIN TIME PROLONGED [None]
  - APHASIA [None]
  - DRUG EXPOSURE DURING PREGNANCY [None]
  - DYSPHASIA [None]
  - FALL [None]
  - HEMIPLEGIA [None]
  - HYPOCOAGULABLE STATE [None]
  - HYPOTONIA [None]
  - IDIOPATHIC THROMBOCYTOPENIC PURPURA [None]
  - ISCHAEMIC STROKE [None]
  - PREMATURE LABOUR [None]
  - PREMATURE RUPTURE OF MEMBRANES [None]
